FAERS Safety Report 6673699-7 (Version None)
Quarter: 2010Q2

REPORT INFORMATION
  Report Type: 
  Country: None (occurrence: None)
  Receive Date: 20100408
  Receipt Date: 20100329
  Transmission Date: 20101027
  Serious: Yes (Hospitalization)
  Sender: FDA-Public Use
  Company Number: HK-GENENTECH-299948

PATIENT
  Age: 27 Year
  Sex: Male

DRUGS (8)
  1. RITUXIMAB [Suspect]
     Indication: LUPUS NEPHRITIS
     Dosage: 1000 MG, UNK
     Route: 065
  2. CYCLOPHOSPHAMIDE [Suspect]
     Indication: LUPUS NEPHRITIS
     Dosage: 750 MG, UNK
     Route: 042
  3. METHYLPREDNISOLONE [Concomitant]
     Indication: LUPUS NEPHRITIS
     Dosage: 250 MG, UNK
     Route: 042
  4. PREDNISOLONE [Concomitant]
     Indication: LUPUS NEPHRITIS
     Dosage: UNK
     Route: 048
  5. PREDNISOLONE [Concomitant]
     Dosage: .5 MG/KG, UNK
     Route: 048
  6. PREDNISOLONE [Concomitant]
     Dosage: UNK, Q2W
     Route: 048
  7. CHLORPHENIRAMINE MALEATE [Concomitant]
     Indication: PREMEDICATION
     Dosage: 10 MG, UNK
     Route: 042
  8. PARACETAMOL [Concomitant]
     Indication: PREMEDICATION
     Dosage: UNK
     Route: 048

REACTIONS (1)
  - PULMONARY HAEMORRHAGE [None]
